FAERS Safety Report 8522127-5 (Version None)
Quarter: 2012Q3

REPORT INFORMATION
  Report Type: 
  Country: None (occurrence: None)
  Receive Date: 20120719
  Receipt Date: 20120717
  Transmission Date: 20120928
  Serious: Yes (Hospitalization)
  Sender: FDA-Public Use
  Company Number: US-009507513-1207USA006149

PATIENT

DRUGS (1)
  1. INVANZ [Suspect]
     Dosage: 500 MG, QD
     Route: 042
     Dates: start: 20120626, end: 20120703

REACTIONS (2)
  - DRUG HYPERSENSITIVITY [None]
  - MENTAL STATUS CHANGES [None]
